FAERS Safety Report 22276640 (Version 2)
Quarter: 2023Q2

REPORT INFORMATION
  Report Type: Spontaneous
  Country: NL (occurrence: NL)
  Receive Date: 20230503
  Receipt Date: 20230529
  Transmission Date: 20230721
  Serious: Yes (Other)
  Sender: FDA-Public Use
  Company Number: NL-BAYER-2023A050722

PATIENT
  Age: 31 Year
  Sex: Female

DRUGS (2)
  1. NIFEDIPINE [Suspect]
     Active Substance: NIFEDIPINE
     Indication: HELLP syndrome
     Dosage: UNK
     Route: 065
  2. MAGNESIUM SULFATE [Concomitant]
     Active Substance: MAGNESIUM SULFATE
     Indication: HELLP syndrome
     Dosage: UNK
     Route: 065

REACTIONS (6)
  - HELLP syndrome [Unknown]
  - Serous retinal detachment [Unknown]
  - Visual impairment [Recovered/Resolved]
  - Headache [Recovered/Resolved]
  - Vision blurred [Unknown]
  - Product use in unapproved indication [Unknown]
